FAERS Safety Report 6886769-5 (Version None)
Quarter: 2010Q3

REPORT INFORMATION
  Report Type: 
  Country: None (occurrence: None)
  Receive Date: 20100730
  Receipt Date: 20100722
  Transmission Date: 20110219
  Serious: Yes (Other)
  Sender: FDA-Public Use
  Company Number: JP-PFIZER INC-2010091487

PATIENT
  Age: 82 Year
  Sex: Male

DRUGS (1)
  1. ZOLOFT [Suspect]
     Dosage: 25 MG, (DAILY DOSE) X 2 MONTHS
     Route: 048

REACTIONS (1)
  - HYPERTHERMIA [None]
